FAERS Safety Report 11111593 (Version 4)
Quarter: 2015Q3

REPORT INFORMATION
  Report Type: Spontaneous
  Country: JP (occurrence: JP)
  Receive Date: 20150514
  Receipt Date: 20150819
  Transmission Date: 20151125
  Serious: Yes (Hospitalization)
  Sender: FDA-Public Use
  Company Number: JP-ROCHE-1577278

PATIENT
  Age: 73 Year
  Sex: Female
  Weight: 43 kg

DRUGS (9)
  1. BARACLUDE [Concomitant]
     Active Substance: ENTECAVIR
     Indication: HEPATITIS B CORE ANTIBODY POSITIVE
     Dosage: DOSAGE UNCERTAIN.
     Route: 048
     Dates: start: 20150427, end: 20150501
  2. REZALTAS [Concomitant]
     Active Substance: AZELNIDIPINE\OLMESARTAN MEDOXOMIL
     Indication: HYPERTENSION
     Route: 048
     Dates: end: 20150504
  3. DECADRON [Concomitant]
     Active Substance: DEXAMETHASONE
     Indication: PROPHYLAXIS
     Route: 041
     Dates: start: 20150427, end: 20150427
  4. XELODA [Suspect]
     Active Substance: CAPECITABINE
     Indication: RECTAL CANCER
     Route: 048
     Dates: start: 20150427, end: 20150503
  5. LAC-B [Concomitant]
     Active Substance: BIFIDOBACTERIUM SPP.
     Indication: RECTAL CANCER
     Dosage: DOSAGE IS UNCERTAIN.
     Route: 048
     Dates: end: 20150504
  6. KYTRIL [Concomitant]
     Active Substance: GRANISETRON HYDROCHLORIDE
     Indication: PROPHYLAXIS
     Route: 041
     Dates: start: 20150427, end: 20150427
  7. ELPLAT [Suspect]
     Active Substance: OXALIPLATIN
     Indication: RECTAL CANCER
     Dosage: MOST RECENT DOSE ON 27/APR/2015.
     Route: 041
     Dates: start: 20150427
  8. DEPAS [Concomitant]
     Active Substance: ETIZOLAM
     Indication: INSOMNIA
     Dosage: .
     Route: 048
  9. POLYCARBOPHIL [Concomitant]
     Active Substance: POLYCARBOPHIL
     Indication: RECTAL CANCER
     Route: 048
     Dates: end: 20150504

REACTIONS (5)
  - Nausea [Unknown]
  - Off label use [Unknown]
  - Acute kidney injury [Recovered/Resolved]
  - Inflammation [Unknown]
  - Malaise [Unknown]

NARRATIVE: CASE EVENT DATE: 20150504
